FAERS Safety Report 20940703 (Version 1)
Quarter: 2022Q2

REPORT INFORMATION
  Report Type: Spontaneous
  Country: US (occurrence: US)
  Receive Date: 20220609
  Receipt Date: 20220609
  Transmission Date: 20220721
  Serious: No
  Sender: FDA-Public Use
  Company Number: US-JNJFOC-20220609216

PATIENT
  Age: 1 Year
  Sex: Male
  Weight: 9.534 kg

DRUGS (4)
  1. MOTRIN INFANTS [Suspect]
     Active Substance: IBUPROFEN
     Indication: Teething
     Dosage: 2 AND 3 ML AROUND 14:00 AND 4 ML AROUND 21:00
     Route: 048
     Dates: start: 20220605
  2. MOTRIN INFANTS [Suspect]
     Active Substance: IBUPROFEN
     Indication: Pyrexia
  3. MOTRIN INFANTS [Suspect]
     Active Substance: IBUPROFEN
     Indication: Malaise
  4. MOTRIN INFANTS [Suspect]
     Active Substance: IBUPROFEN
     Indication: Secretion discharge

REACTIONS (4)
  - Lethargy [Not Recovered/Not Resolved]
  - Illness [Not Recovered/Not Resolved]
  - Incorrect dose administered [Unknown]
  - Product use in unapproved indication [Unknown]

NARRATIVE: CASE EVENT DATE: 20220605
